FAERS Safety Report 19951952 (Version 1)
Quarter: 2021Q4

REPORT INFORMATION
  Report Type: Spontaneous
  Country: US (occurrence: US)
  Receive Date: 20211014
  Receipt Date: 20211014
  Transmission Date: 20220303
  Serious: Yes (Hospitalization)
  Sender: FDA-Public Use
  Company Number: US-GSKCCFUS-CASE-01187683_AE-69525

PATIENT
  Sex: Female

DRUGS (1)
  1. PROPAFENONE HYDROCHLORIDE [Suspect]
     Active Substance: PROPAFENONE HYDROCHLORIDE
     Indication: Product used for unknown indication
     Dosage: 1 DF, BID, 325
     Route: 048

REACTIONS (2)
  - Drug ineffective [Unknown]
  - Product substitution issue [Unknown]
